FAERS Safety Report 13760317 (Version 1)
Quarter: 2017Q3

REPORT INFORMATION
  Report Type: Spontaneous
  Country: US (occurrence: US)
  Receive Date: 20170717
  Receipt Date: 20170717
  Transmission Date: 20171127
  Serious: Yes (Other)
  Sender: FDA-Public Use
  Company Number: US-AMGEN-USASP2017105685

PATIENT
  Age: 31 Year
  Sex: Male
  Weight: 142.86 kg

DRUGS (1)
  1. ENBREL [Suspect]
     Active Substance: ETANERCEPT
     Indication: RHEUMATOID ARTHRITIS
     Dosage: 50 MG, QWK
     Route: 058
     Dates: start: 20170414

REACTIONS (3)
  - Arthropod bite [Unknown]
  - Lyme disease [Unknown]
  - Tendon sheath incision [Unknown]

NARRATIVE: CASE EVENT DATE: 2017
